FAERS Safety Report 5890119-0 (Version None)
Quarter: 2008Q3

REPORT INFORMATION
  Report Type: 
  Country: None (occurrence: None)
  Receive Date: 20080919
  Receipt Date: 20080828
  Transmission Date: 20090109
  Serious: No
  Sender: FDA-Public Use
  Company Number: US-B.I. PHARMACEUTICALS,INC./RIDGEFIELD-2008-BP-13906BP

PATIENT
  Age: 60 Year
  Sex: Female

DRUGS (2)
  1. VIRAMUNE [Suspect]
     Dosage: 400MG
     Dates: start: 19980101
  2. TRUVADA [Concomitant]

REACTIONS (1)
  - RASH [None]
